FAERS Safety Report 6522797-7 (Version None)
Quarter: 2009Q4

REPORT INFORMATION
  Report Type: 
  Country: None (occurrence: None)
  Receive Date: 20091222
  Receipt Date: 20091209
  Transmission Date: 20100525
  Serious: Yes (Other)
  Sender: FDA-Public Use
  Company Number: 1000010856

PATIENT
  Age: 5 Month

DRUGS (1)
  1. ESCITALOPRAM [Suspect]
     Dosage: 5 MG, TRANSMAMMARY
     Route: 063

REACTIONS (4)
  - DRUG EXPOSURE VIA BREAST MILK [None]
  - INSOMNIA [None]
  - RESTLESSNESS [None]
  - TENSION [None]
